FAERS Safety Report 8245465-2 (Version None)
Quarter: 2012Q1

REPORT INFORMATION
  Report Type: 
  Country: None (occurrence: None)
  Receive Date: 20120329
  Receipt Date: 20120328
  Transmission Date: 20120608
  Serious: Yes (Other)
  Sender: FDA-Public Use
  Company Number: DE-MERCK-1202DEU00044

PATIENT
  Age: 71 Year
  Sex: Female
  Weight: 75 kg

DRUGS (2)
  1. JANUMET [Suspect]
     Indication: DIABETES MELLITUS
     Route: 048
     Dates: start: 20111128, end: 20120201
  2. HYDROCHLOROTHIAZIDE AND RAMIPRIL [Concomitant]
     Indication: HYPERTENSION
     Route: 048
     Dates: start: 20060101

REACTIONS (3)
  - ABDOMINAL DISCOMFORT [None]
  - LIPASE INCREASED [None]
  - AMYLASE INCREASED [None]
